FAERS Safety Report 7202468-4 (Version None)
Quarter: 2010Q4

REPORT INFORMATION
  Report Type: 
  Country: None (occurrence: None)
  Receive Date: 20101229
  Receipt Date: 20101222
  Transmission Date: 20110411
  Serious: Yes (Hospitalization)
  Sender: FDA-Public Use
  Company Number: B0690744A

PATIENT
  Sex: Male

DRUGS (7)
  1. AMOXICILLIN [Suspect]
     Indication: BRONCHITIS
     Dosage: 1G THREE TIMES PER DAY
     Route: 048
     Dates: start: 20101103, end: 20101111
  2. TAVANIC [Suspect]
     Indication: BRONCHITIS
     Dosage: 500MG PER DAY
     Route: 048
     Dates: start: 20101117, end: 20101123
  3. GLICLAZIDE [Suspect]
     Indication: TYPE 2 DIABETES MELLITUS
     Dosage: 60MG PER DAY
     Route: 048
     Dates: start: 20100601, end: 20101125
  4. CLARITHROMYCIN [Suspect]
     Indication: BRONCHITIS
     Dosage: 500MG PER DAY
     Route: 048
     Dates: start: 20101110, end: 20101115
  5. PARACETAMOL [Suspect]
     Indication: NECK PAIN
     Dosage: 8G PER DAY
     Route: 048
     Dates: start: 20101101
  6. OLMETEC [Concomitant]
     Indication: HYPERTENSION
     Route: 048
     Dates: start: 20101110
  7. RAMIPRIL [Concomitant]
     Indication: HYPERTENSION
     Dates: end: 20101110

REACTIONS (6)
  - ASTHENIA [None]
  - DECREASED APPETITE [None]
  - HAEMOLYTIC ANAEMIA [None]
  - HYPERBILIRUBINAEMIA [None]
  - JAUNDICE [None]
  - VOMITING [None]
